FAERS Safety Report 6900652-8 (Version None)
Quarter: 2010Q3

REPORT INFORMATION
  Report Type: 
  Country: None (occurrence: None)
  Receive Date: 20100803
  Receipt Date: 20100726
  Transmission Date: 20110219
  Serious: Yes (Hospitalization)
  Sender: FDA-Public Use
  Company Number: US-JNJFOC-20100708155

PATIENT
  Sex: Male
  Weight: 67.4 kg

DRUGS (4)
  1. REMICADE [Suspect]
     Indication: CROHN'S DISEASE
     Route: 042
  2. REMICADE [Suspect]
     Route: 042
  3. ANTIBIOTICS [Concomitant]
     Indication: INFLAMMATORY BOWEL DISEASE
  4. PERCOCET [Concomitant]

REACTIONS (3)
  - ESCHERICHIA INFECTION [None]
  - KLEBSIELLA INFECTION [None]
  - PERIRECTAL ABSCESS [None]
